FAERS Safety Report 6414075-1 (Version None)
Quarter: 2009Q4

REPORT INFORMATION
  Report Type: 
  Country: None (occurrence: None)
  Receive Date: 20091022
  Receipt Date: 20091022
  Transmission Date: 20100525
  Serious: Yes (Other)
  Sender: FDA-Public Use
  Company Number: None

PATIENT
  Sex: Female

DRUGS (1)
  1. SUMATRIPTAN [Suspect]
     Indication: MIGRAINE
     Dosage: 100 MG Q12 PRN
     Dates: start: 20090401, end: 20090501

REACTIONS (2)
  - INADEQUATE ANALGESIA [None]
  - NAUSEA [None]
